FAERS Safety Report 4390903-9 (Version None)
Quarter: 2004Q3

REPORT INFORMATION
  Report Type: 
  Country: None (occurrence: None)
  Receive Date: 20040702
  Receipt Date: 20040702
  Transmission Date: 20050211
  Serious: Yes (Other)
  Sender: FDA-Public Use
  Company Number: None

PATIENT
  Age: 52 Year
  Sex: Female
  Weight: 56.7 kg

DRUGS (8)
  1. LEXAPRO [Suspect]
     Indication: BIPOLAR I DISORDER
     Dosage: 10 MG Q DAY ORAL
     Route: 048
     Dates: start: 20040422, end: 20040505
  2. LEXAPRO [Suspect]
     Indication: SCHIZOAFFECTIVE DISORDER
     Dosage: 10 MG Q DAY ORAL
     Route: 048
     Dates: start: 20040422, end: 20040505
  3. BENZTROPINE MESYLATE [Concomitant]
  4. CLONAZEPAM [Concomitant]
  5. RISPERIDONE [Concomitant]
  6. VALPROIC ACID [Concomitant]
  7. VITAMIN E [Concomitant]
  8. IBUPROFEN [Concomitant]

REACTIONS (2)
  - PRURITUS [None]
  - RASH [None]
